FAERS Safety Report 5373246-6 (Version None)
Quarter: 2007Q2

REPORT INFORMATION
  Report Type: 
  Country: None (occurrence: None)
  Receive Date: 20070628
  Receipt Date: 20070618
  Transmission Date: 20071010
  Serious: Yes (Hospitalization)
  Sender: FDA-Public Use
  Company Number: PHHO2007DE10201

PATIENT
  Sex: Male
  Weight: 84 kg

DRUGS (10)
  1. CYCLOSPORINE [Suspect]
     Indication: RENAL TRANSPLANT
     Dosage: 200MG DAILY
     Route: 048
     Dates: start: 20061104
  2. MYCOPHENOLATE MOFETIL [Concomitant]
     Indication: RENAL TRANSPLANT
     Dosage: 2000 MG DAILY
     Route: 048
     Dates: start: 20061104
  3. BELOC ZOK [Concomitant]
  4. PANTOZOL [Concomitant]
  5. FUROSEMIDE [Concomitant]
  6. AMLODIPINE [Concomitant]
  7. CLONIDINE [Concomitant]
  8. LORZAAR [Concomitant]
  9. RAMIPRIL [Concomitant]
  10. CIPROFLOXACIN HCL [Concomitant]

REACTIONS (7)
  - BLADDER INJURY [None]
  - CYTOMEGALOVIRUS INFECTION [None]
  - ILEUS [None]
  - INCISIONAL DRAINAGE [None]
  - KIDNEY TRANSPLANT REJECTION [None]
  - LYMPHOCELE [None]
  - METABOLIC ENCEPHALOPATHY [None]
